FAERS Safety Report 12091886 (Version 1)
Quarter: 2016Q1

REPORT INFORMATION
  Report Type: Report from Study
  Country: US (occurrence: US)
  Receive Date: 20160219
  Receipt Date: 20160219
  Transmission Date: 20160526
  Serious: No
  Sender: FDA-Public Use
  Company Number: US-AMGEN-USASL2016017281

PATIENT
  Sex: Male

DRUGS (1)
  1. ENBREL [Suspect]
     Active Substance: ETANERCEPT
     Indication: ANKYLOSING SPONDYLITIS
     Dosage: UNK
     Route: 065
     Dates: start: 20151221

REACTIONS (6)
  - Injection site irritation [Unknown]
  - Drug dose omission [Unknown]
  - Injection site pain [Unknown]
  - Nervousness [Unknown]
  - Back pain [Unknown]
  - Pain in extremity [Unknown]
